FAERS Safety Report 24740098 (Version 1)
Quarter: 2024Q4

REPORT INFORMATION
  Report Type: Spontaneous
  Country: US (occurrence: US)
  Receive Date: 20241216
  Receipt Date: 20241216
  Transmission Date: 20250114
  Serious: No
  Sender: CELLTRION
  Company Number: US-CELLTRION INC.-2024US024273

PATIENT

DRUGS (1)
  1. ZYMFENTRA [Suspect]
     Active Substance: INFLIXIMAB-DYYB
     Indication: Colitis ulcerative
     Dosage: 120 MG INJECTED SUBCUTANEOUSLY EVERY 2 WEEKS (NOT STARTED)
     Route: 058

REACTIONS (1)
  - Treatment delayed [Unknown]

NARRATIVE: CASE EVENT DATE: 20240903
